FAERS Safety Report 16668514 (Version 2)
Quarter: 2019Q3

REPORT INFORMATION
  Report Type: Spontaneous
  Country: JP (occurrence: JP)
  Receive Date: 20190805
  Receipt Date: 20190904
  Transmission Date: 20191004
  Serious: Yes (Other)
  Sender: FDA-Public Use
  Company Number: JP-BAYER-2019-141270

PATIENT
  Age: 74 Year
  Sex: Male

DRUGS (7)
  1. GLIMEPIRIDE. [Concomitant]
     Active Substance: GLIMEPIRIDE
  2. MELBURAL [Concomitant]
  3. MAGMITT [Concomitant]
     Active Substance: MAGNESIUM OXIDE
  4. AZELNIDIPINE [Concomitant]
     Active Substance: AZELNIDIPINE
     Dosage: UNK UNK, BID
  5. TRAZENTA [Concomitant]
     Active Substance: LINAGLIPTIN
  6. NEXAVAR [Suspect]
     Active Substance: SORAFENIB
     Indication: HEPATOCELLULAR CARCINOMA
     Dosage: DAILY DOSE 800 MG, BID
     Route: 048
  7. LINZESS [Concomitant]
     Active Substance: LINACLOTIDE

REACTIONS (2)
  - Hepatocellular carcinoma [Recovering/Resolving]
  - Drug ineffective [None]

NARRATIVE: CASE EVENT DATE: 20180309
